FAERS Safety Report 25772938 (Version 1)
Quarter: 2025Q3

REPORT INFORMATION
  Report Type: Report from Study
  Country: KR (occurrence: KR)
  Receive Date: 20250908
  Receipt Date: 20250908
  Transmission Date: 20251021
  Serious: Yes (Other)
  Sender: MYLAN
  Company Number: KR-MYLANLABS-2025M1075164

PATIENT
  Sex: Male
  Weight: 64.1 kg

DRUGS (57)
  1. LIPITOR [Suspect]
     Active Substance: ATORVASTATIN CALCIUM
     Indication: Hyperlipidaemia
     Dosage: 10 MILLIGRAM, QD
  2. ALPRAZOLAM [Suspect]
     Active Substance: ALPRAZOLAM
     Indication: Depression
     Dosage: 0.125 MILLIGRAM, QD
     Dates: start: 20230102
  3. BEVACIZUMAB [Suspect]
     Active Substance: BEVACIZUMAB
     Indication: Colorectal cancer metastatic
     Dosage: 330 MILLIGRAM, BIWEEKLY
     Dates: start: 20221212, end: 20221212
  4. BEVACIZUMAB [Suspect]
     Active Substance: BEVACIZUMAB
     Dosage: 388 MILLIGRAM, BIWEEKLY
     Dates: start: 20221227, end: 20221227
  5. LACTULOSE [Suspect]
     Active Substance: LACTULOSE
     Indication: Constipation prophylaxis
     Dosage: 15 MILLILITER, Q8H
     Dates: start: 20221124, end: 20230105
  6. ESOMEPRAZOLE MAGNESIUM [Suspect]
     Active Substance: ESOMEPRAZOLE MAGNESIUM
     Indication: Prophylaxis
     Dosage: 20 MILLIGRAM, QD
     Dates: start: 2022, end: 20230105
  7. CIMETIDINE [Suspect]
     Active Substance: CIMETIDINE
     Indication: Prophylaxis
     Dosage: 200 MILLIGRAM, Q8H
     Dates: start: 2022, end: 20230104
  8. METFORMIN HYDROCHLORIDE [Suspect]
     Active Substance: METFORMIN HYDROCHLORIDE
     Indication: Hypertension
     Dosage: 500 MILLIGRAM, BID
     Dates: end: 20230105
  9. METFORMIN HYDROCHLORIDE [Suspect]
     Active Substance: METFORMIN HYDROCHLORIDE
     Indication: Diabetes mellitus
     Dosage: 500 MILLIGRAM, BID
  10. DUTASTERIDE [Suspect]
     Active Substance: DUTASTERIDE
     Indication: Benign prostatic hyperplasia
     Dosage: 0.5 MILLIGRAM, QD
     Dates: end: 20221214
  11. DUTASTERIDE [Suspect]
     Active Substance: DUTASTERIDE
     Dosage: 0.5 MILLIGRAM, QD
     Dates: start: 20221215, end: 20230106
  12. CANDESARTAN CILEXETIL [Suspect]
     Active Substance: CANDESARTAN CILEXETIL
     Indication: Hypertension
     Dosage: 8 MILLIGRAM, QD
     Dates: end: 20221221
  13. LIMAPROST [Suspect]
     Active Substance: LIMAPROST
     Indication: Hypertension
     Dosage: 5 MILLIGRAM, Q8H
     Dates: end: 20221229
  14. MORPHINE HYDROCHLORIDE [Suspect]
     Active Substance: MORPHINE HYDROCHLORIDE
     Indication: Cancer pain
     Dosage: 5 MILLIGRAM, QD
     Dates: start: 20221212, end: 20221219
  15. OXALIPLATIN [Suspect]
     Active Substance: OXALIPLATIN
     Indication: Colon cancer
     Dosage: 104 MILLIGRAM, QD
     Dates: start: 20221212, end: 20221212
  16. OXALIPLATIN [Suspect]
     Active Substance: OXALIPLATIN
     Dosage: 75 MILLIGRAM, QD
     Dates: start: 20221227, end: 20221227
  17. FLUOROURACIL [Suspect]
     Active Substance: FLUOROURACIL
     Indication: Colon cancer
     Dosage: 490 MILLIGRAM, QD
     Dates: start: 20221212, end: 20221212
  18. FLUOROURACIL [Suspect]
     Active Substance: FLUOROURACIL
     Dosage: 1470 MILLIGRAM, QD
     Dates: start: 20221212, end: 20221213
  19. FLUOROURACIL [Suspect]
     Active Substance: FLUOROURACIL
     Dosage: 354 MILLIGRAM, QD
     Dates: start: 20221227, end: 20221227
  20. FLUOROURACIL [Suspect]
     Active Substance: FLUOROURACIL
     Dosage: 1062 MILLIGRAM, QD
     Dates: start: 20221227, end: 20221228
  21. PALONOSETRON HYDROCHLORIDE [Suspect]
     Active Substance: PALONOSETRON HYDROCHLORIDE
     Indication: Prophylaxis
     Dosage: 0.25 MILLIGRAM, QD
     Dates: start: 20221212, end: 20221212
  22. PALONOSETRON HYDROCHLORIDE [Suspect]
     Active Substance: PALONOSETRON HYDROCHLORIDE
     Dosage: 0.25 MILLIGRAM, QD
     Dates: start: 20221227, end: 20221227
  23. METOCLOPRAMIDE HYDROCHLORIDE [Suspect]
     Active Substance: METOCLOPRAMIDE HYDROCHLORIDE
     Indication: Prophylaxis
     Dosage: 10 MILLIGRAM, QD
     Dates: start: 20221212, end: 20221215
  24. METOCLOPRAMIDE HYDROCHLORIDE [Suspect]
     Active Substance: METOCLOPRAMIDE HYDROCHLORIDE
     Dosage: 10 MILLIGRAM, QD
     Dates: start: 20221227, end: 20221227
  25. DEXAMETHASONE SODIUM PHOSPHATE [Suspect]
     Active Substance: DEXAMETHASONE SODIUM PHOSPHATE
     Indication: Prophylaxis
     Dosage: 10 MILLIGRAM, QD
     Dates: start: 20221212, end: 20221212
  26. DEXAMETHASONE SODIUM PHOSPHATE [Suspect]
     Active Substance: DEXAMETHASONE SODIUM PHOSPHATE
     Dosage: 8 MILLIGRAM, QD
     Dates: start: 20221213, end: 20221214
  27. DEXAMETHASONE SODIUM PHOSPHATE [Suspect]
     Active Substance: DEXAMETHASONE SODIUM PHOSPHATE
     Dosage: 10 MILLIGRAM, QD
     Dates: start: 20221227, end: 20221227
  28. DEXAMETHASONE SODIUM PHOSPHATE [Suspect]
     Active Substance: DEXAMETHASONE SODIUM PHOSPHATE
     Dosage: 8 MILLIGRAM, QD
     Dates: start: 20221228, end: 20221229
  29. CHLORPHENIRAMINE MALEATE [Suspect]
     Active Substance: CHLORPHENIRAMINE MALEATE
     Indication: Prophylaxis
     Dosage: 4 MILLIGRAM, QD
     Dates: start: 20221212, end: 20221212
  30. CHLORPHENIRAMINE MALEATE [Suspect]
     Active Substance: CHLORPHENIRAMINE MALEATE
     Dosage: 4 MILLIGRAM, QD
     Dates: start: 20221227, end: 20221227
  31. ACETAMINOPHEN [Suspect]
     Active Substance: ACETAMINOPHEN
     Indication: Premedication
     Dosage: 650 MILLIGRAM, QD
     Dates: start: 20221212, end: 20221212
  32. MINOXIDIL [Suspect]
     Active Substance: MINOXIDIL
     Indication: Hypertension
     Dosage: 5 MILLIGRAM, QD
     Dates: start: 20221219
  33. CARVEDILOL [Suspect]
     Active Substance: CARVEDILOL
     Indication: Hypertension
     Dosage: 25 MILLIGRAM, QD
     Dates: start: 20221222
  34. NICARDIPINE HYDROCHLORIDE [Suspect]
     Active Substance: NICARDIPINE HYDROCHLORIDE
     Indication: Hypertension
     Dosage: 2 MILLIGRAM, Q6H
     Dates: start: 20221216, end: 20221217
  35. PIROXICAM [Suspect]
     Active Substance: PIROXICAM
     Indication: Cancer pain
     Dosage: 96 MILLIGRAM, QD
     Dates: start: 20221216, end: 20221227
  36. PIROXICAM [Suspect]
     Active Substance: PIROXICAM
     Dosage: 240 MILLIGRAM, QD
     Dates: start: 20221228
  37. NIFEDIPINE [Suspect]
     Active Substance: NIFEDIPINE
     Indication: Hypertension
     Dosage: 30 MILLIGRAM, QD
     Dates: start: 20221217
  38. LEUCOVORIN CALCIUM [Suspect]
     Active Substance: LEUCOVORIN CALCIUM
     Indication: Colon cancer
     Dosage: 490 MILLIGRAM, QD
     Dates: start: 20221212, end: 20221212
  39. LEUCOVORIN CALCIUM [Suspect]
     Active Substance: LEUCOVORIN CALCIUM
     Dosage: 354 MILLIGRAM, QD
     Dates: start: 20221227, end: 20221227
  40. ZOLEDRONIC ACID [Suspect]
     Active Substance: ZOLEDRONIC ACID
     Indication: Colon cancer
     Dosage: 4 MILLIGRAM, QD
     Dates: start: 20221222, end: 20221222
  41. CEFOTAXIME SODIUM [Suspect]
     Active Substance: CEFOTAXIME SODIUM
     Indication: Pneumonia
     Dosage: 2 GRAM, BID
     Dates: start: 20221229, end: 20221229
  42. ALBUTEROL SULFATE [Suspect]
     Active Substance: ALBUTEROL SULFATE
     Indication: Pneumonia
     Dosage: 2.5 MILLIGRAM, QD
     Dates: start: 20221229, end: 20221229
  43. PIPERACILLIN SODIUM\TAZOBACTAM SODIUM [Suspect]
     Active Substance: PIPERACILLIN SODIUM\TAZOBACTAM SODIUM
     Indication: Pneumonia
     Dosage: 4.5 GRAM, Q8H
     Dates: start: 20221223, end: 20221225
  44. PIPERACILLIN SODIUM\TAZOBACTAM SODIUM [Suspect]
     Active Substance: PIPERACILLIN SODIUM\TAZOBACTAM SODIUM
     Indication: Pyrexia
     Dosage: 4.5 GRAM, Q6H
     Dates: start: 20221230, end: 20230106
  45. MORPHINE SULFATE [Suspect]
     Active Substance: MORPHINE SULFATE
     Indication: Cancer pain
  46. ALBUMIN HUMAN [Suspect]
     Active Substance: ALBUMIN HUMAN
     Indication: Hypoalbuminaemia
     Dosage: 100 MILLILITER, QD
     Dates: start: 20221220, end: 20221221
  47. ESCITALOPRAM OXALATE [Suspect]
     Active Substance: ESCITALOPRAM OXALATE
     Indication: Pneumonia
     Dosage: 2.5 GRAM, QD
     Dates: start: 20221229
  48. LEVOFLOXACIN [Suspect]
     Active Substance: LEVOFLOXACIN
     Indication: Pneumonia
     Dosage: 750 MILLIGRAM, QD
     Dates: start: 20221220, end: 20230113
  49. LEVOFLOXACIN [Suspect]
     Active Substance: LEVOFLOXACIN
     Dosage: 500 MILLIGRAM, QOD
     Dates: start: 20230115, end: 20230119
  50. TRANEXAMIC ACID [Suspect]
     Active Substance: TRANEXAMIC ACID
     Indication: Pneumonia
     Dosage: 500 MILLIGRAM, Q6H
     Dates: start: 20221230, end: 20230108
  51. ACETYLCYSTEINE [Suspect]
     Active Substance: ACETYLCYSTEINE
     Indication: Pneumonia
     Dosage: 600 MILLIGRAM, BID
     Dates: start: 20221230
  52. BENZYDAMINE HYDROCHLORIDE [Suspect]
     Active Substance: BENZYDAMINE HYDROCHLORIDE
     Indication: Prophylaxis
     Dosage: 15 MILLILITER, Q8H
     Dates: start: 20221219
  53. METHYLPREDNISOLONE SODIUM SUCCINATE [Suspect]
     Active Substance: METHYLPREDNISOLONE SODIUM SUCCINATE
     Indication: Pneumonia
     Dosage: 30 MILLIGRAM, QD
     Dates: start: 20221231
  54. MEROPENEM [Suspect]
     Active Substance: MEROPENEM
     Indication: Pneumonia
     Dosage: 1 GRAM, Q8H
     Dates: start: 20230107
  55. FENTANYL [Suspect]
     Active Substance: FENTANYL
     Indication: Colon cancer
     Dosage: 1200 MICROGRAM, QD
     Dates: start: 20230107
  56. SULFAMETHOXAZOLE\TRIMETHOPRIM [Suspect]
     Active Substance: SULFAMETHOXAZOLE\TRIMETHOPRIM
     Indication: Pneumonia
     Dosage: 480 MILLIGRAM, QD
     Dates: start: 20230106
  57. TEICOPLANIN [Suspect]
     Active Substance: TEICOPLANIN
     Indication: Pneumonia
     Dosage: 400 MILLIGRAM, BID
     Dates: start: 20230107

REACTIONS (1)
  - Acute kidney injury [Recovered/Resolved with Sequelae]

NARRATIVE: CASE EVENT DATE: 20230112
